FAERS Safety Report 8045934-4 (Version None)
Quarter: 2012Q1

REPORT INFORMATION
  Report Type: 
  Country: None (occurrence: None)
  Receive Date: 20120113
  Receipt Date: 20120111
  Transmission Date: 20120608
  Serious: Yes (Other)
  Sender: FDA-Public Use
  Company Number: RU-VIIV HEALTHCARE LIMITED-B0772772A

PATIENT
  Age: 49 Year
  Sex: Male

DRUGS (2)
  1. COMBIVIR [Suspect]
     Indication: HIV INFECTION
     Route: 048
  2. ZIAGEN [Suspect]
     Indication: HIV INFECTION
     Route: 048

REACTIONS (5)
  - LOSS OF CONSCIOUSNESS [None]
  - DISORIENTATION [None]
  - EPILEPSY [None]
  - MEMORY IMPAIRMENT [None]
  - SOMNOLENCE [None]
